FAERS Safety Report 25430602 (Version 1)
Quarter: 2025Q2

REPORT INFORMATION
  Report Type: Spontaneous
  Country: RU (occurrence: RU)
  Receive Date: 20250612
  Receipt Date: 20250612
  Transmission Date: 20250717
  Serious: Yes (Other)
  Sender: NOVARTIS
  Company Number: RU-002147023-NVSC2025RU092232

PATIENT

DRUGS (4)
  1. DABRAFENIB [Suspect]
     Active Substance: DABRAFENIB
     Indication: Product used for unknown indication
     Route: 065
     Dates: start: 202305, end: 202307
  2. DABRAFENIB [Suspect]
     Active Substance: DABRAFENIB
     Route: 065
     Dates: start: 202311
  3. TRAMETINIB [Suspect]
     Active Substance: TRAMETINIB
     Indication: Product used for unknown indication
     Route: 065
     Dates: start: 202305, end: 202307
  4. TRAMETINIB [Suspect]
     Active Substance: TRAMETINIB
     Route: 065
     Dates: start: 202311

REACTIONS (3)
  - Hypertension [Not Recovered/Not Resolved]
  - Pyrexia [Recovering/Resolving]
  - Intentional dose omission [Unknown]

NARRATIVE: CASE EVENT DATE: 20230501
